FAERS Safety Report 23134642 (Version 2)
Quarter: 2023Q4

REPORT INFORMATION
  Report Type: Spontaneous
  Country: US (occurrence: US)
  Receive Date: 20231101
  Receipt Date: 20231113
  Transmission Date: 20240110
  Serious: Yes (Hospitalization)
  Sender: FDA-Public Use
  Company Number: US-TEVA-2023-US-2940248

PATIENT
  Age: 28 Year
  Sex: Male

DRUGS (1)
  1. OLANZAPINE [Suspect]
     Active Substance: OLANZAPINE
     Indication: Bipolar disorder
     Route: 065

REACTIONS (6)
  - Metabolic syndrome [Recovering/Resolving]
  - Diabetic ketoacidosis [Unknown]
  - Hypertriglyceridaemia [Recovering/Resolving]
  - Pancreatitis acute [Unknown]
  - Hypertension [Unknown]
  - Hyperkalaemia [Unknown]
